FAERS Safety Report 6226546-1 (Version None)
Quarter: 2009Q2

REPORT INFORMATION
  Report Type: 
  Country: None (occurrence: None)
  Receive Date: 20090612
  Receipt Date: 20090518
  Transmission Date: 20091009
  Serious: No
  Sender: FDA-Public Use
  Company Number: US-ABBOTT-09P-163-0574043-00

PATIENT
  Sex: Female
  Weight: 72.186 kg

DRUGS (5)
  1. HUMIRA [Suspect]
     Indication: RHEUMATOID ARTHRITIS
     Route: 058
     Dates: start: 20080501
  2. HUMIRA [Suspect]
     Route: 058
     Dates: start: 20071201, end: 20080501
  3. LORATADINE [Concomitant]
     Indication: DRUG USE FOR UNKNOWN INDICATION
     Route: 048
     Dates: start: 20090501
  4. FLEXERIL [Concomitant]
     Indication: PAIN
     Dosage: AS NEEDED
     Route: 048
  5. CYMBALTA [Concomitant]
     Indication: DRUG USE FOR UNKNOWN INDICATION
     Route: 048
     Dates: start: 20090501

REACTIONS (2)
  - DRUG DOSE OMISSION [None]
  - INJECTION SITE HAEMATOMA [None]
